FAERS Safety Report 18204812 (Version 4)
Quarter: 2022Q1

REPORT INFORMATION
  Report Type: Spontaneous
  Country: FR (occurrence: FR)
  Receive Date: 20200828
  Receipt Date: 20220317
  Transmission Date: 20220423
  Serious: Yes (Disabling, Other)
  Sender: FDA-Public Use
  Company Number: FR-SA-2019SA300097

PATIENT
  Age: 63 Year
  Sex: Female

DRUGS (2)
  1. IMATINIB [Suspect]
     Active Substance: IMATINIB
     Indication: Gastrointestinal stromal tumour
     Dosage: 400 MILLIGRAM, ONCE A DAY, ADJUVANT THERAPY (RE-INITIATED, PERMANENTLY STOPPED )
     Route: 065
  2. IMATINIB [Suspect]
     Active Substance: IMATINIB
     Indication: Adjuvant therapy

REACTIONS (9)
  - Bone marrow oedema [Recovered/Resolved]
  - Joint swelling [Recovered/Resolved]
  - Arthralgia [Recovered/Resolved]
  - Complex regional pain syndrome [Recovered/Resolved]
  - Erythrocyanosis [Recovered/Resolved]
  - Gait disturbance [Recovered/Resolved]
  - Decreased activity [Recovered/Resolved]
  - Effusion [Recovered/Resolved]
  - Off label use [Unknown]
